FAERS Safety Report 12794331 (Version 3)
Quarter: 2017Q2

REPORT INFORMATION
  Report Type: Spontaneous
  Country: US (occurrence: US)
  Receive Date: 20160929
  Receipt Date: 20170607
  Transmission Date: 20170830
  Serious: Yes (Other)
  Sender: FDA-Public Use
  Company Number: US-JNJFOC-20160905694

PATIENT
  Sex: Male

DRUGS (2)
  1. RISPERDAL [Suspect]
     Active Substance: RISPERIDONE
     Indication: MENTAL DISORDER
     Route: 048
     Dates: start: 1996
  2. RISPERDAL [Suspect]
     Active Substance: RISPERIDONE
     Indication: MENTAL DISORDER
     Dosage: IN VARYING DOSES OF 1MG - 3MG
     Route: 048
     Dates: start: 1996, end: 1999

REACTIONS (7)
  - Gynaecomastia [Unknown]
  - Hypokinesia [Unknown]
  - Self esteem decreased [Unknown]
  - Gender dysphoria [Unknown]
  - Depression [Unknown]
  - Sedation [Unknown]
  - Sleep disorder [Unknown]

NARRATIVE: CASE EVENT DATE: 1997
